FAERS Safety Report 7743394-1 (Version None)
Quarter: 2011Q3

REPORT INFORMATION
  Report Type: 
  Country: None (occurrence: None)
  Receive Date: 20110906
  Receipt Date: 20110825
  Transmission Date: 20111222
  Serious: Yes (Hospitalization)
  Sender: FDA-Public Use
  Company Number: 2010SP014821

PATIENT
  Age: 18 Year
  Sex: Female
  Weight: 76.2043 kg

DRUGS (5)
  1. INH [Concomitant]
  2. HEPARIN [Suspect]
  3. NUVARING [Suspect]
     Indication: DYSMENORRHOEA
     Dosage: QM;VAG
     Route: 067
     Dates: start: 20060831, end: 20070801
  4. NUVARING [Suspect]
     Indication: MENOMETRORRHAGIA
     Dosage: QM;VAG
     Route: 067
     Dates: start: 20060831, end: 20070801
  5. MULTI-VITAMINS [Concomitant]

REACTIONS (15)
  - POLLAKIURIA [None]
  - DEEP VEIN THROMBOSIS [None]
  - APPENDICITIS [None]
  - SUPRAPUBIC PAIN [None]
  - DISTURBANCE IN ATTENTION [None]
  - DRUG INEFFECTIVE [None]
  - HERPES SIMPLEX [None]
  - DYSPNOEA [None]
  - FACTOR V DEFICIENCY [None]
  - VAGINAL HAEMORRHAGE [None]
  - DYSURIA [None]
  - PROTHROMBIN TIME PROLONGED [None]
  - HEPARIN-INDUCED THROMBOCYTOPENIA [None]
  - APATHY [None]
  - SKIN IRRITATION [None]
